FAERS Safety Report 4654793-9 (Version None)
Quarter: 2005Q2

REPORT INFORMATION
  Report Type: 
  Country: None (occurrence: None)
  Receive Date: 20050504
  Receipt Date: 20050421
  Transmission Date: 20051028
  Serious: Yes (Hospitalization, Other)
  Sender: FDA-Public Use
  Company Number: 2005062078

PATIENT
  Age: 58 Year
  Sex: Male

DRUGS (2)
  1. NORVASC [Suspect]
     Indication: HYPERTENSION
     Dosage: 10 MG (10 MG, 1 IN 1 D) ORAL
     Route: 048
     Dates: start: 19980101
  2. ACETYLSALICYLIC ACID [Concomitant]

REACTIONS (4)
  - CAROTID ARTERY OCCLUSION [None]
  - HYPOTENSION [None]
  - ISCHAEMIC STROKE [None]
  - REFUSAL OF TREATMENT BY PATIENT [None]
